FAERS Safety Report 8778505 (Version 1)
Quarter: 2012Q4

REPORT INFORMATION
  Report Type: 
  Country: AU (occurrence: AU)
  Receive Date: 20120912
  Receipt Date: 20120912
  Transmission Date: 20130627
  Serious: Yes (Death)
  Sender: FDA-Public Use
  Company Number: AU-BAXTER-2012BAX016662

PATIENT
  Age: 62 Year
  Sex: Female

DRUGS (1)
  1. SYNTHAMIN 17 AMINO ACID 10% WITHOUT ELECTROLYTES AND GLUCOSE 50% 1000M [Suspect]
     Indication: TOTAL PARENTERAL NUTRITION
     Route: 042
     Dates: end: 20120908

REACTIONS (2)
  - Death [Fatal]
  - Disease complication [None]
